FAERS Safety Report 15755788 (Version 6)
Quarter: 2025Q3

REPORT INFORMATION
  Report Type: Spontaneous
  Country: EU (occurrence: EU)
  Receive Date: 20181224
  Receipt Date: 20250705
  Transmission Date: 20251020
  Serious: Yes (Other)
  Sender: AUROBINDO
  Company Number: EU-AUROBINDO-AUR-APL-2018-061987

PATIENT
  Age: 25 Year
  Sex: Female

DRUGS (14)
  1. TENOFOVIR DISOPROXIL [Suspect]
     Active Substance: TENOFOVIR DISOPROXIL
     Indication: HIV infection
     Dosage: 300 MILLIGRAM, ONCE A DAY
     Route: 065
     Dates: start: 20151101
  2. TENOFOVIR DISOPROXIL [Suspect]
     Active Substance: TENOFOVIR DISOPROXIL
     Dosage: 300 MILLIGRAM, ONCE A DAY
     Route: 065
     Dates: start: 201511
  3. DARUNAVIR\RITONAVIR [Suspect]
     Active Substance: DARUNAVIR\RITONAVIR
     Indication: HIV infection
     Route: 065
     Dates: start: 20151101
  4. DARUNAVIR\RITONAVIR [Suspect]
     Active Substance: DARUNAVIR\RITONAVIR
     Dosage: 2 DOSAGE FORM, ONCE A DAY (600/100 MG, BID)
     Route: 065
     Dates: start: 201511
  5. DOLUTEGRAVIR [Suspect]
     Active Substance: DOLUTEGRAVIR
     Indication: HIV infection
     Route: 065
     Dates: start: 201605
  6. DOLUTEGRAVIR [Suspect]
     Active Substance: DOLUTEGRAVIR
     Dosage: 100 MILLIGRAM, ONCE A DAY (50 MG, BID)
     Route: 065
     Dates: start: 201605
  7. DOLUTEGRAVIR [Suspect]
     Active Substance: DOLUTEGRAVIR
     Dosage: 50 MILLIGRAM, ONCE A DAY
     Route: 065
     Dates: start: 201605
  8. DOLUTEGRAVIR [Suspect]
     Active Substance: DOLUTEGRAVIR
     Route: 065
     Dates: start: 2016
  9. MARAVIROC [Suspect]
     Active Substance: MARAVIROC
     Indication: HIV infection
     Dosage: 150 MILLIGRAM, ONCE A DAY
     Route: 065
     Dates: start: 20151101
  10. MARAVIROC [Suspect]
     Active Substance: MARAVIROC
     Route: 065
  11. MARAVIROC [Suspect]
     Active Substance: MARAVIROC
     Dosage: 300 MILLIGRAM, ONCE A DAY, 150 MG BID
     Route: 065
     Dates: start: 20151101
  12. RALTEGRAVIR [Suspect]
     Active Substance: RALTEGRAVIR
     Indication: HIV infection
     Route: 048
     Dates: start: 201511, end: 2016
  13. RALTEGRAVIR [Suspect]
     Active Substance: RALTEGRAVIR
     Route: 065
     Dates: start: 2016
  14. ZIDOVUDINE [Concomitant]
     Active Substance: ZIDOVUDINE
     Indication: Antiviral prophylaxis
     Route: 042

REACTIONS (6)
  - Pathogen resistance [Not Recovered/Not Resolved]
  - Exposure during pregnancy [Recovered/Resolved]
  - Caesarean section [Unknown]
  - Normal newborn [Unknown]
  - Drug ineffective [Unknown]
  - Antiviral drug level below therapeutic [Not Recovered/Not Resolved]

NARRATIVE: CASE EVENT DATE: 20160401
